FAERS Safety Report 8201365-5 (Version None)
Quarter: 2012Q1

REPORT INFORMATION
  Report Type: 
  Country: None (occurrence: None)
  Receive Date: 20120312
  Receipt Date: 20120305
  Transmission Date: 20120608
  Serious: Yes (Other)
  Sender: FDA-Public Use
  Company Number: TW-ROXANE LABORATORIES, INC.-2012-RO-00786RO

PATIENT
  Age: 37 Year
  Sex: Female
  Weight: 70 kg

DRUGS (4)
  1. IMMUNE GLOBULIN NOS [Suspect]
     Indication: MYXOEDEMA
     Dosage: 24 G
     Route: 042
  2. CYCLOPHOSPHAMIDE [Suspect]
     Indication: SCLERODERMA
  3. PREDNISONE TAB [Suspect]
     Indication: MYXOEDEMA
     Dosage: 20 MG
  4. METHYLPREDNISOLONE [Suspect]
     Indication: MYXOEDEMA
     Route: 042

REACTIONS (1)
  - ADIPOSIS DOLOROSA [None]
